FAERS Safety Report 7999192 (Version 3)
Quarter: 2015Q3

REPORT INFORMATION
  Report Type: Spontaneous
  Country: JP (occurrence: None)
  Receive Date: 20110602
  Receipt Date: 20150720
  Transmission Date: 20151125
  Serious: Yes (Hospitalization, Other)
  Sender: FDA-Public Use
  Company Number: 2009JP007358

PATIENT
  Age: 65 Year
  Sex: Male
  Weight: 80 kg

DRUGS (14)
  1. DIOVAN [Concomitant]
     Active Substance: VALSARTAN
  2. PREDNISOLONE (PREDNISOLONE) [Concomitant]
     Active Substance: PREDNISOLONE
  3. MEXITIL (MEXILETINE HYDROCHLORIDE) [Concomitant]
  4. ALFAROL [Concomitant]
     Active Substance: ALFACALCIDOL
  5. LASIX [Concomitant]
     Active Substance: FUROSEMIDE
  6. MAINTATE (BISOPROLOL FUMARATE) [Concomitant]
  7. FOSAMAC (ALENDRONATE SODIUM) [Concomitant]
  8. BAKTAR (SULFAMETHOXAZOLE-TRIMETHOPRIM) [Concomitant]
  9. PROGRAF [Suspect]
     Active Substance: TACROLIMUS\TACROLIMUS ANHYDROUS
     Indication: LUPUS NEPHRITIS
     Dosage: 1 MG, UNKNOWN FREQ., ORAL
     Route: 048
     Dates: start: 20090518, end: 20090713
  10. NORVASC [Concomitant]
     Active Substance: AMLODIPINE BESYLATE
  11. TAKEPRON (LANSOPRAZOLE) [Concomitant]
     Active Substance: LANSOPRAZOLE
  12. WARFARIN (WARFARIN POTASSIUM) [Concomitant]
  13. ITRIZOLE (ITRACONAZOLE) [Concomitant]
  14. ZYLORIC (ALLOPURINOL) [Concomitant]
     Active Substance: ALLOPURINOL

REACTIONS (7)
  - Nephrotic syndrome [None]
  - Drug interaction [None]
  - Pleural effusion [None]
  - Urinary retention [None]
  - Prostate cancer [None]
  - Tremor [None]
  - Drug level increased [None]
